FAERS Safety Report 7197325-6 (Version None)
Quarter: 2010Q4

REPORT INFORMATION
  Report Type: 
  Country: None (occurrence: None)
  Receive Date: 20101213
  Receipt Date: 20101209
  Transmission Date: 20110411
  Serious: Yes (Death)
  Sender: FDA-Public Use
  Company Number: 2010SP063864

PATIENT
  Weight: 80 kg

DRUGS (3)
  1. TEMODAL [Suspect]
     Indication: BRAIN NEOPLASM
     Dosage: 360 MG; QD; INDRP
     Route: 041
     Dates: start: 20100706, end: 20100710
  2. TEMODAL [Suspect]
     Indication: BRAIN NEOPLASM
     Dosage: 360 MG; QD; INDRP
     Route: 041
     Dates: start: 20100803, end: 20100807
  3. TEMODAL [Suspect]
     Indication: BRAIN NEOPLASM
     Dosage: 360 MG; QD; INDRP
     Route: 041
     Dates: start: 20100831, end: 20100904

REACTIONS (3)
  - CEREBRAL INFARCTION [None]
  - IMPAIRED WORK ABILITY [None]
  - VOMITING [None]
